FAERS Safety Report 12714236 (Version 6)
Quarter: 2019Q2

REPORT INFORMATION
  Report Type: Spontaneous
  Country: US (occurrence: US)
  Receive Date: 20160905
  Receipt Date: 20190530
  Transmission Date: 20190711
  Serious: Yes (Other)
  Sender: FDA-Public Use
  Company Number: US-PFIZER INC-2016415278

PATIENT
  Age: 59 Year
  Sex: Female

DRUGS (3)
  1. FLUDROCORTISONE ACETATE. [Concomitant]
     Active Substance: FLUDROCORTISONE ACETATE
     Dosage: 0.1 MG, DAILY
  2. SUTENT [Suspect]
     Active Substance: SUNITINIB MALATE
     Dosage: 50 MG, CYCLIC (1 TAB DAILY FOR 4 WKS THEN 2 WKS OFF))
     Route: 048
     Dates: start: 201608
  3. SUTENT [Suspect]
     Active Substance: SUNITINIB MALATE
     Indication: RENAL CANCER METASTATIC
     Dosage: 50 MG, CYCLIC (28 DAYS ON/14 DAYS OFF)
     Route: 048
     Dates: start: 20160803, end: 20160830

REACTIONS (5)
  - Ageusia [Unknown]
  - Swelling face [Unknown]
  - Diarrhoea [Unknown]
  - Haematochezia [Unknown]
  - Dyspepsia [Unknown]
